FAERS Safety Report 10419467 (Version 1)
Quarter: 2014Q2

REPORT INFORMATION
  Report Type: Spontaneous
  Country: US (occurrence: None)
  Receive Date: 20140625
  Receipt Date: 20140625
  Transmission Date: 20141212
  Serious: No
  Sender: FDA-Public Use
  Company Number: A-US2014-94462

PATIENT
  Age: 55 Year
  Sex: Male

DRUGS (1)
  1. OPSUMIT (MACITENTAN) [Suspect]
     Indication: PRODUCT USED FOR UNKNOWN INDICATION
     Route: 048
     Dates: start: 20130124

REACTIONS (4)
  - Dyspnoea [None]
  - Feeling abnormal [None]
  - Gait disturbance [None]
  - No therapeutic response [None]
